FAERS Safety Report 23571681 (Version 1)
Quarter: 2024Q1

REPORT INFORMATION
  Report Type: Spontaneous
  Country: US (occurrence: US)
  Receive Date: 20240227
  Receipt Date: 20240227
  Transmission Date: 20240410
  Serious: Yes (Death)
  Sender: FDA-Public Use
  Company Number: US-RIGEL PHARMACEUTICALS, INC.-2024OLU000013

PATIENT
  Age: 67 Year
  Sex: Male
  Weight: 58.6 kg

DRUGS (1)
  1. REZLIDHIA [Suspect]
     Active Substance: OLUTASIDENIB
     Indication: Acute myeloid leukaemia
     Dosage: 150 MG, BID
     Route: 048
     Dates: start: 20240126, end: 20240214

REACTIONS (1)
  - Death [Fatal]

NARRATIVE: CASE EVENT DATE: 20240214
